FAERS Safety Report 19164540 (Version 1)
Quarter: 2021Q2

REPORT INFORMATION
  Report Type: Spontaneous
  Country: TW (occurrence: TW)
  Receive Date: 20210421
  Receipt Date: 20210421
  Transmission Date: 20210717
  Serious: Yes (Other)
  Sender: FDA-Public Use
  Company Number: TW-ASTRAZENECA-2021A306411

PATIENT

DRUGS (1)
  1. GEFITINIB. [Suspect]
     Active Substance: GEFITINIB
     Indication: NON-SMALL CELL LUNG CANCER
     Route: 048

REACTIONS (6)
  - EGFR gene mutation [Unknown]
  - Metastases to liver [Unknown]
  - Malignant transformation [Unknown]
  - Malignant neoplasm progression [Unknown]
  - Sarcomatoid carcinoma of the lung [Unknown]
  - Drug resistance [Unknown]
